FAERS Safety Report 9726666 (Version 1)
Quarter: 2013Q4

REPORT INFORMATION
  Report Type: Spontaneous
  Country: CH (occurrence: CH)
  Receive Date: 20131203
  Receipt Date: 20131203
  Transmission Date: 20140711
  Serious: Yes (Hospitalization)
  Sender: FDA-Public Use
  Company Number: CH-BAYER-2013-144802

PATIENT
  Age: 84 Year
  Sex: Female
  Weight: 70 kg

DRUGS (17)
  1. ULTRAVIST [Suspect]
     Indication: X-RAY WITH CONTRAST
     Dosage: 100 ML, UNK
     Route: 042
     Dates: start: 20131018, end: 20131018
  2. LIQUEMIN [Concomitant]
  3. PLAVIX [Concomitant]
  4. ASPIRIN CARDIO [Concomitant]
  5. CORDARONE [Concomitant]
  6. DILATREND [Concomitant]
     Dosage: UNK
     Dates: end: 201310
  7. ALDACTONE [SPIRONOLACTONE] [Concomitant]
     Dosage: UNK
     Dates: end: 201310
  8. TRIATEC [Concomitant]
     Dosage: UNK
     Dates: end: 201310
  9. TOREM [Concomitant]
  10. ATORVASTATIN [Concomitant]
  11. MAGNESIOCARD [Concomitant]
     Dosage: UNK
     Dates: end: 201310
  12. PANTOZOL [Concomitant]
  13. KALIUM [Concomitant]
     Dosage: UNK
     Dates: end: 201310
  14. PHOSPHATE [PHOSPHORIC ACID SODIUM] [Concomitant]
     Dosage: UNK
     Dates: end: 201310
  15. SEROQUEL [Concomitant]
  16. DOSPIR [Concomitant]
  17. TAZOBACTAM [Concomitant]
     Dosage: UNK
     Dates: end: 201310

REACTIONS (2)
  - Renal failure chronic [Recovered/Resolved]
  - Anuria [Recovered/Resolved]
